FAERS Safety Report 10470649 (Version 1)
Quarter: 2014Q3

REPORT INFORMATION
  Report Type: Spontaneous
  Country: CA (occurrence: CA)
  Receive Date: 20140923
  Receipt Date: 20140923
  Transmission Date: 20150326
  Serious: Yes (Other)
  Sender: FDA-Public Use
  Company Number: CA-ROXANE LABORATORIES, INC.-2014-BI-44399GD

PATIENT
  Age: 32 Year
  Sex: Female

DRUGS (5)
  1. INSULIN [Suspect]
     Active Substance: INSULIN NOS
     Indication: GESTATIONAL DIABETES
     Route: 065
  2. PREDNISONE. [Suspect]
     Active Substance: PREDNISONE
     Indication: THROMBOTIC THROMBOCYTOPENIC PURPURA
     Dosage: 125 MG
     Route: 065
  3. ASPIRIN. [Suspect]
     Active Substance: ASPIRIN
     Indication: THROMBOTIC THROMBOCYTOPENIC PURPURA
     Dosage: 81 MG
     Route: 065
  4. THYROXINE [Suspect]
     Active Substance: LEVOTHYROXINE
     Indication: HYPOTHYROIDISM
     Dosage: 0.05 MG
     Route: 065
  5. LABETALOL [Suspect]
     Active Substance: LABETALOL\LABETALOL HYDROCHLORIDE
     Indication: HYPERTENSION
     Dosage: 200 MG
     Route: 065

REACTIONS (5)
  - Procedural haemorrhage [Unknown]
  - Wound infection bacterial [Unknown]
  - Renal failure acute [Unknown]
  - Oligohydramnios [Recovered/Resolved]
  - Pre-eclampsia [Unknown]
